FAERS Safety Report 9456390 (Version 1)
Quarter: 2013Q3

REPORT INFORMATION
  Report Type: Spontaneous
  Country: US (occurrence: US)
  Receive Date: 20130813
  Receipt Date: 20130813
  Transmission Date: 20140515
  Serious: No
  Sender: FDA-Public Use
  Company Number: US-VERTEX PHARMACEUTICALS INC-2013-008721

PATIENT
  Sex: Female

DRUGS (25)
  1. KALYDECO [Suspect]
     Indication: CYSTIC FIBROSIS
     Dosage: 150 MG, BID
     Route: 048
     Dates: start: 201207
  2. CREON [Concomitant]
     Indication: CYSTIC FIBROSIS
     Dosage: 24 MG, UNK
  3. PULMOZYME [Concomitant]
     Indication: CYSTIC FIBROSIS
     Dosage: 2.5 ML, UNK
  4. VITAMIN K [Concomitant]
     Dosage: 5 MG, UNK
  5. PREDNISONE [Concomitant]
     Dosage: 10 MG, UNK
  6. ATIVAN [Concomitant]
     Dosage: 0.5 MG, UNK
  7. NEXIUM [Concomitant]
     Dosage: 40 MG, UNK
  8. CELEXA [Concomitant]
     Dosage: 20 MG, UNK
  9. SINGULAIR [Concomitant]
     Dosage: 10 MG, UNK
  10. ALYACEN 1/35 [Concomitant]
  11. CONCERTA [Concomitant]
     Dosage: 36 MG, UNK
  12. ZYRTEC [Concomitant]
     Dosage: 20 MG, UNK
  13. DUONEB [Concomitant]
     Dosage: 1 AMPULE
  14. PROAIR [Concomitant]
     Dosage: 2 PUFFS, QD
  15. IRON [Concomitant]
     Dosage: 325 MG, UNK
  16. VITAMIN B2 [Concomitant]
     Dosage: 60000 DF, UNK
  17. TOBRAMYCIN [Concomitant]
  18. LEVAQUIN [Concomitant]
     Dosage: 750 MG, UNK
  19. FISH OIL [Concomitant]
     Dosage: 300 MG, UNK
  20. COENZYME Q10 [Concomitant]
     Dosage: 100 MG, UNK
  21. VITAMIN B [Concomitant]
     Dosage: 300 MG, UNK
  22. MULTIVITAMIN [Concomitant]
  23. MULTIMINERAL [Concomitant]
  24. TRANEXAMIC ACID [Concomitant]
     Dosage: 650 MG, UNK
  25. NOVOLOG [Concomitant]
     Dosage: SLIDING SCALE

REACTIONS (2)
  - Feeling abnormal [Not Recovered/Not Resolved]
  - Drug dose omission [Not Recovered/Not Resolved]
